FAERS Safety Report 6382784-9 (Version None)
Quarter: 2009Q3

REPORT INFORMATION
  Report Type: 
  Country: None (occurrence: None)
  Receive Date: 20090928
  Receipt Date: 20090928
  Transmission Date: 20100115
  Serious: Yes (Other)
  Sender: FDA-Public Use
  Company Number: None

PATIENT
  Age: 46 Year
  Sex: Female
  Weight: 56.246 kg

DRUGS (1)
  1. LYRICA [Suspect]

REACTIONS (12)
  - ACTIVITIES OF DAILY LIVING IMPAIRED [None]
  - BLISTER [None]
  - DIARRHOEA [None]
  - DRY SKIN [None]
  - IMPAIRED WORK ABILITY [None]
  - LOSS OF EMPLOYMENT [None]
  - MOVEMENT DISORDER [None]
  - MYALGIA [None]
  - PSORIASIS [None]
  - SLEEP DISORDER [None]
  - VOMITING [None]
  - WITHDRAWAL SYNDROME [None]
